FAERS Safety Report 8935923 (Version 1)
Quarter: 2012Q4

REPORT INFORMATION
  Report Type: 
  Country: US (occurrence: US)
  Receive Date: 20121130
  Receipt Date: 20121130
  Transmission Date: 20130627
  Serious: No
  Sender: FDA-Public Use
  Company Number: US-PFIZER INC-2012299551

PATIENT
  Age: 57 Year
  Sex: Female
  Weight: 72.56 kg

DRUGS (4)
  1. LYRICA [Suspect]
     Indication: ARTHRITIC PAINS
     Dosage: UNK
     Dates: start: 201210, end: 2012
  2. LYRICA [Suspect]
     Indication: INTERVERTEBRAL DISC DISORDER
  3. LORTAB [Concomitant]
     Indication: ARTHRITIC PAINS
     Dosage: UNK
  4. LORTAB [Concomitant]
     Indication: INTERVERTEBRAL DISC DISORDER

REACTIONS (1)
  - Malaise [Unknown]
